FAERS Safety Report 8880023 (Version 1)
Quarter: 2012Q4

REPORT INFORMATION
  Report Type: 
  Country: JP (occurrence: JP)
  Receive Date: 20121031
  Receipt Date: 20121031
  Transmission Date: 20130627
  Serious: Yes (Other)
  Sender: FDA-Public Use
  Company Number: JP-009507513-2012SP034568

PATIENT
  Age: 69 Year
  Sex: Male
  Weight: 68 kg

DRUGS (15)
  1. PEGINTRON [Suspect]
     Indication: HEPATITIS C
     Dosage: 1.5 Microgram per kilogram, qw
     Route: 058
     Dates: start: 20120302, end: 20120412
  2. PEGINTRON [Suspect]
     Dosage: 80 Microgram, qw
     Route: 058
     Dates: start: 20120413
  3. REBETOL [Suspect]
     Indication: HEPATITIS C
     Dosage: 800 mg, qd
     Route: 048
     Dates: start: 20120302, end: 20120329
  4. REBETOL [Suspect]
     Dosage: 600 mg, qd
     Route: 048
     Dates: start: 20120330, end: 20120405
  5. REBETOL [Suspect]
     Dosage: 400 mg, qd
     Route: 048
     Dates: start: 20120406, end: 20120412
  6. REBETOL [Suspect]
     Dosage: 200 mg, qd
     Route: 048
     Dates: start: 20120413
  7. TELAVIC [Suspect]
     Indication: HEPATITIS C
     Dosage: 2250 mg, qd
     Route: 048
     Dates: start: 20120302
  8. ALOSITOL [Concomitant]
     Indication: HYPERURICAEMIA
     Dosage: 100 mg, qd
     Route: 048
     Dates: start: 20120406
  9. LOCHOL (FLUVASTATIN SODIUM) [Concomitant]
     Indication: DYSLIPIDAEMIA
     Dosage: 20 mg, qd
     Route: 048
     Dates: start: 20120302
  10. LOCHOL (FLUVASTATIN SODIUM) [Concomitant]
     Indication: LIPIDS ABNORMAL
  11. ONEALFA [Concomitant]
     Indication: VITAMIN D DEFICIENCY
     Dosage: FORMULATION: POR, OTHER INDICATION: VITAMIN D DEFICIENCY
     Route: 048
     Dates: start: 20120302
  12. RINDERON (BETAMETHASONE) [Concomitant]
     Indication: RASH
     Dosage: UNK UNK, Unknown
     Route: 065
     Dates: start: 20120518
  13. CELESTAMINE [Concomitant]
     Indication: RASH
     Dosage: 2 TABLETS TWICE A DAY
     Route: 065
     Dates: start: 20120518
  14. LOXONIN [Concomitant]
     Dosage: 60 DF, qd
     Route: 048
  15. GASTER [Suspect]
     Dosage: 20 DF, qd
     Route: 048

REACTIONS (1)
  - Retinal haemorrhage [Recovered/Resolved]
